FAERS Safety Report 25348430 (Version 1)
Quarter: 2025Q2

REPORT INFORMATION
  Report Type: Report from Study
  Country: US (occurrence: US)
  Receive Date: 20250522
  Receipt Date: 20250522
  Transmission Date: 20250716
  Serious: Yes (Other)
  Sender: ABBVIE
  Company Number: US-ABBVIE-6190467

PATIENT
  Age: 78 Year
  Sex: Male
  Weight: 81 kg

DRUGS (2)
  1. RINVOQ [Suspect]
     Active Substance: UPADACITINIB
     Indication: Colitis ulcerative
     Dosage: FORM STRENGTH:15 MG, FOR 8 WEEKS, LAST ADMIN DATE:2024
     Route: 048
     Dates: start: 20240801
  2. RINVOQ [Suspect]
     Active Substance: UPADACITINIB
     Indication: Colitis ulcerative
     Dosage: FORM STRENGTH:15 MG
     Route: 048
     Dates: start: 20240926

REACTIONS (7)
  - Plasma cell myeloma [Unknown]
  - Clavicle fracture [Unknown]
  - Rotator cuff syndrome [Unknown]
  - Back pain [Not Recovered/Not Resolved]
  - Musculoskeletal disorder [Unknown]
  - Loss of personal independence in daily activities [Unknown]
  - Insomnia [Not Recovered/Not Resolved]

NARRATIVE: CASE EVENT DATE: 20250130
